FAERS Safety Report 24760583 (Version 1)
Quarter: 2024Q4

REPORT INFORMATION
  Report Type: Spontaneous
  Country: US (occurrence: None)
  Receive Date: 20241220
  Receipt Date: 20241220
  Transmission Date: 20250115
  Serious: Yes (Hospitalization, Other)
  Sender: Public
  Company Number: None

PATIENT
  Age: 68 Year
  Sex: Male
  Weight: 66.15 kg

DRUGS (1)
  1. GAMUNEX-C [Suspect]
     Active Substance: HUMAN IMMUNOGLOBULIN G
     Indication: Myasthenia gravis
     Dosage: 26 G GRM(S) DILY FOR 5 DAYS?
     Route: 042
     Dates: start: 20241216, end: 20241218

REACTIONS (2)
  - Dehydration [None]
  - Myasthenia gravis [None]

NARRATIVE: CASE EVENT DATE: 20241219
